FAERS Safety Report 8777790 (Version 2)
Quarter: 2012Q4

REPORT INFORMATION
  Report Type: 
  Country: DE (occurrence: DE)
  Receive Date: 20120911
  Receipt Date: 20120926
  Transmission Date: 20130627
  Serious: Yes (Hospitalization)
  Sender: FDA-Public Use
  Company Number: PHHO2012DE012865

PATIENT
  Age: 55 Year
  Sex: Male
  Weight: 89 kg

DRUGS (7)
  1. EVEROLIMUS [Suspect]
     Indication: HEART TRANSPLANT
     Dosage: 2.5 mg, BID
     Route: 048
     Dates: start: 20120810
  2. ACETYLSALICYLIC ACID [Concomitant]
     Indication: ANTIPLATELET THERAPY
     Dosage: 100 mg, QD
     Route: 048
     Dates: start: 20111108
  3. BISOPROLOL [Concomitant]
     Indication: SINUS TACHYCARDIA
     Dosage: 2.5 mg, QD
     Route: 048
     Dates: start: 20120706
  4. DIOVAN [Concomitant]
     Indication: HYPERTENSION
     Dosage: 60 mg, QD
     Route: 048
     Dates: start: 20120618
  5. REVATIO [Concomitant]
     Indication: PULMONARY HYPERTENSION
     Dosage: 100 mg, TID
     Route: 048
     Dates: start: 20111108
  6. VALCYTE [Concomitant]
     Indication: INFECTION PROPHYLAXIS
     Dosage: 450 mg, QD
     Route: 048
     Dates: start: 20111112
  7. COTRIM [Concomitant]
     Indication: INFECTION PROPHYLAXIS
     Dosage: 960 mg, QD
     Route: 048
     Dates: start: 20111118

REACTIONS (3)
  - Pericardial effusion [Recovering/Resolving]
  - Ejection fraction abnormal [Recovering/Resolving]
  - Aneurysm [None]
